FAERS Safety Report 18755154 (Version 1)
Quarter: 2021Q1

REPORT INFORMATION
  Report Type: Spontaneous
  Country: US (occurrence: US)
  Receive Date: 20210118
  Receipt Date: 20210118
  Transmission Date: 20210419
  Serious: Yes (Hospitalization, Other)
  Sender: FDA-Public Use
  Company Number: None

PATIENT
  Age: 59 Year
  Sex: Female
  Weight: 108.6 kg

DRUGS (3)
  1. DEXAMETHASONE. [Concomitant]
     Active Substance: DEXAMETHASONE
     Dates: start: 20201217, end: 20210114
  2. REMDESIVIR. [Concomitant]
     Active Substance: REMDESIVIR
     Dates: start: 20201217, end: 20201221
  3. BARICITINIB. [Suspect]
     Active Substance: BARICITINIB
     Indication: COVID-19
     Route: 048
     Dates: start: 20201221, end: 20201227

REACTIONS (9)
  - Hypoxia [None]
  - Infection [None]
  - Hypercalcaemia [None]
  - Dysphagia [None]
  - Condition aggravated [None]
  - Intentional product use issue [None]
  - Lung disorder [None]
  - Hyperkalaemia [None]
  - Staphylococcus test positive [None]

NARRATIVE: CASE EVENT DATE: 20201226
